FAERS Safety Report 8621001-3 (Version None)
Quarter: 2012Q3

REPORT INFORMATION
  Report Type: 
  Country: None (occurrence: None)
  Receive Date: 20120824
  Receipt Date: 20120821
  Transmission Date: 20120928
  Serious: Yes (Other)
  Sender: FDA-Public Use
  Company Number: US-BAYER-2012-087255

PATIENT
  Age: 62 Year
  Sex: Female

DRUGS (1)
  1. BETASERON [Suspect]
     Indication: MULTIPLE SCLEROSIS
     Dosage: 0.25 MG, QOD
     Route: 058
     Dates: start: 20080101

REACTIONS (5)
  - FATIGUE [None]
  - EPSTEIN-BARR VIRUS TEST POSITIVE [None]
  - MUCOSAL DISCOLOURATION [None]
  - INJECTION SITE RASH [None]
  - MALAISE [None]
